FAERS Safety Report 4466701-4 (Version None)
Quarter: 2004Q4

REPORT INFORMATION
  Report Type: 
  Country: None (occurrence: None)
  Receive Date: 20041001
  Receipt Date: 20041001
  Transmission Date: 20050328
  Serious: Yes (Life-Threatening, Hospitalization, Disabling)
  Sender: FDA-Public Use
  Company Number: None

PATIENT
  Age: 58 Year
  Sex: Male
  Weight: 95.2554 kg

DRUGS (2)
  1. VIOXX [Suspect]
     Indication: ARTHRITIS
     Dosage: 25 MG ONE A DAY ORAL
     Route: 048
     Dates: start: 19990405, end: 20040930
  2. CELEBREX [Suspect]
     Indication: ARTHRITIS
     Dosage: ONE A DAY ORAL
     Route: 048
     Dates: start: 19990104, end: 19990404

REACTIONS (1)
  - CORONARY ARTERY SURGERY [None]
